FAERS Safety Report 5587194-X (Version None)
Quarter: 2008Q1

REPORT INFORMATION
  Report Type: 
  Country: None (occurrence: None)
  Receive Date: 20080110
  Receipt Date: 20080102
  Transmission Date: 20080703
  Serious: Yes (Other)
  Sender: FDA-Public Use
  Company Number: PHBS2008FR00461

PATIENT
  Age: 41 Year
  Sex: Female

DRUGS (2)
  1. CARBAMAZEPINE [Suspect]
     Indication: PETIT MAL EPILEPSY
  2. PHENOBARBITAL TAB [Concomitant]
     Indication: PETIT MAL EPILEPSY

REACTIONS (1)
  - PETIT MAL EPILEPSY [None]
